FAERS Safety Report 10160967 (Version 2)
Quarter: 2014Q2

REPORT INFORMATION
  Report Type: Spontaneous
  Country: FR (occurrence: FR)
  Receive Date: 20140508
  Receipt Date: 20140521
  Transmission Date: 20141212
  Serious: Yes (Hospitalization, Other)
  Sender: FDA-Public Use
  Company Number: FR-BAXTER-2014BAX021816

PATIENT
  Age: 65 Year
  Sex: Female

DRUGS (15)
  1. SEVOFLURANE BAXTER 1 ML/ML, LIQUIDE POUR INHALATION PAR VAPEUR [Suspect]
     Indication: GENERAL ANAESTHESIA
     Route: 065
     Dates: start: 20121119, end: 20121119
  2. SEVOFLURANE BAXTER 1 ML/ML, LIQUIDE POUR INHALATION PAR VAPEUR [Suspect]
     Indication: BLADDER NECK SUSPENSION
  3. DIPRIVAN [Suspect]
     Indication: GENERAL ANAESTHESIA
     Route: 042
     Dates: start: 20121119, end: 20121119
  4. DIPRIVAN [Suspect]
     Indication: BLADDER NECK SUSPENSION
  5. AUGMENTIN [Suspect]
     Indication: GENERAL ANAESTHESIA
     Route: 065
     Dates: start: 20121119, end: 20121119
  6. AUGMENTIN [Suspect]
     Indication: BLADDER NECK SUSPENSION
  7. DEXAMETHASONE [Suspect]
     Indication: GENERAL ANAESTHESIA
     Route: 065
     Dates: start: 20121119, end: 20121119
  8. DEXAMETHASONE [Suspect]
     Indication: BLADDER NECK SUSPENSION
  9. CONTRAMAL [Suspect]
     Indication: GENERAL ANAESTHESIA
     Route: 065
     Dates: start: 20121119, end: 20121119
  10. CONTRAMAL [Suspect]
     Indication: BLADDER NECK SUSPENSION
  11. SUFENTA [Suspect]
     Indication: GENERAL ANAESTHESIA
     Route: 065
     Dates: start: 20121119, end: 20121119
  12. SUFENTA [Suspect]
     Indication: BLADDER NECK SUSPENSION
  13. SEROPLEX [Concomitant]
     Indication: PRODUCT USED FOR UNKNOWN INDICATION
     Route: 065
  14. INEXIUM [Concomitant]
     Indication: PRODUCT USED FOR UNKNOWN INDICATION
     Route: 065
  15. ZOPICLONE [Concomitant]
     Indication: PRODUCT USED FOR UNKNOWN INDICATION
     Route: 065

REACTIONS (3)
  - Renal tubular necrosis [Unknown]
  - Renal failure acute [Recovered/Resolved]
  - Oliguria [Recovered/Resolved]
